FAERS Safety Report 10356168 (Version 3)
Quarter: 2014Q4

REPORT INFORMATION
  Report Type: Report from Study
  Country: BR (occurrence: BR)
  Receive Date: 20140801
  Receipt Date: 20141014
  Transmission Date: 20150528
  Serious: Yes (Hospitalization)
  Sender: FDA-Public Use
  Company Number: BR-ROCHE-1426242

PATIENT
  Age: 49 Year
  Sex: Female
  Weight: 67 kg

DRUGS (8)
  1. SIMVASTATIN. [Concomitant]
     Active Substance: SIMVASTATIN
  2. BI-PROFENID [Concomitant]
     Active Substance: KETOPROFEN
  3. ALENDRONATE SODIUM. [Concomitant]
     Active Substance: ALENDRONATE SODIUM
  4. ACTEMRA [Suspect]
     Active Substance: TOCILIZUMAB
     Indication: RHEUMATOID ARTHRITIS
     Route: 042
     Dates: start: 20120701
  5. FOLIC ACID. [Concomitant]
     Active Substance: FOLIC ACID
  6. PREDSIM [Concomitant]
     Active Substance: PREDNISOLONE
  7. CALCORT [Concomitant]
     Active Substance: DEFLAZACORT
  8. ACTEMRA [Suspect]
     Active Substance: TOCILIZUMAB
     Route: 042
     Dates: start: 20140401

REACTIONS (3)
  - Dengue fever [Recovered/Resolved]
  - Postoperative wound infection [Recovered/Resolved]
  - Cerebral haemorrhage [Recovered/Resolved]

NARRATIVE: CASE EVENT DATE: 201405
